FAERS Safety Report 9366803 (Version 1)
Quarter: 2013Q2

REPORT INFORMATION
  Report Type: Spontaneous
  Country: IT (occurrence: IT)
  Receive Date: 20130625
  Receipt Date: 20130625
  Transmission Date: 20140414
  Serious: Yes (Other)
  Sender: FDA-Public Use
  Company Number: IT-JNJFOC-20130612063

PATIENT
  Age: 66 Year
  Sex: Female

DRUGS (5)
  1. INFLIXIMAB, RECOMBINANT [Suspect]
     Indication: PSORIATIC ARTHROPATHY
     Route: 042
  2. INFLIXIMAB, RECOMBINANT [Suspect]
     Indication: PSORIATIC ARTHROPATHY
     Route: 042
     Dates: start: 20100406, end: 20130103
  3. PANTOPRAZOLE [Concomitant]
     Indication: PROPHYLAXIS AGAINST GASTROINTESTINAL ULCER
     Route: 065
  4. SIMVASTATIN [Concomitant]
     Indication: ATHEROSCLEROSIS PROPHYLAXIS
     Route: 065
  5. PARACETAMOL [Concomitant]
     Indication: ARTHRALGIA
     Route: 065

REACTIONS (1)
  - Tuberculosis [Recovering/Resolving]
